FAERS Safety Report 11529536 (Version 1)
Quarter: 2015Q3

REPORT INFORMATION
  Report Type: Report from Study
  Country: US (occurrence: US)
  Receive Date: 20150921
  Receipt Date: 20150921
  Transmission Date: 20151125
  Serious: Yes (Hospitalization)
  Sender: FDA-Public Use
  Company Number: US-BIOGENIDEC-2015BI126918

PATIENT
  Age: 62 Year
  Sex: Female

DRUGS (5)
  1. AVONEX [Suspect]
     Active Substance: INTERFERON BETA-1A
     Indication: MULTIPLE SCLEROSIS
     Route: 030
     Dates: start: 20140318
  2. OXYBUTININ CHLORIDE [Concomitant]
  3. MODAFINIL. [Concomitant]
     Active Substance: MODAFINIL
  4. ESTRADIOL. [Concomitant]
     Active Substance: ESTRADIOL
  5. PREDNISONE. [Concomitant]
     Active Substance: PREDNISONE

REACTIONS (3)
  - Cellulitis [Not Recovered/Not Resolved]
  - Gait disturbance [Not Recovered/Not Resolved]
  - Injection site cyst [Recovered/Resolved]

NARRATIVE: CASE EVENT DATE: 201508
